FAERS Safety Report 5663236-8 (Version None)
Quarter: 2008Q1

REPORT INFORMATION
  Report Type: 
  Country: None (occurrence: None)
  Receive Date: 20080311
  Receipt Date: 20080311
  Transmission Date: 20080703
  Serious: Yes (Other)
  Sender: FDA-Public Use
  Company Number: None

PATIENT
  Age: 67 Year
  Sex: Male
  Weight: 104.3273 kg

DRUGS (1)
  1. BYETTA [Suspect]
     Indication: DIABETES MELLITUS
     Dosage: 10MCG 2X DAILY CUTANEOUS
     Route: 003
     Dates: start: 20071005, end: 20080215

REACTIONS (2)
  - ABDOMINAL PAIN UPPER [None]
  - EPISTAXIS [None]
